FAERS Safety Report 7761470-4 (Version None)
Quarter: 2011Q3

REPORT INFORMATION
  Report Type: 
  Country: None (occurrence: None)
  Receive Date: 20110919
  Receipt Date: 20110919
  Transmission Date: 20111222
  Serious: No
  Sender: FDA-Public Use
  Company Number: None

PATIENT
  Age: 81 Year
  Sex: Female

DRUGS (1)
  1. AMOXICILLIN AND CLAVULANATE POTASSIUM [Suspect]
     Dates: start: 20100101, end: 20100101

REACTIONS (10)
  - ALANINE AMINOTRANSFERASE INCREASED [None]
  - BILIRUBIN CONJUGATED INCREASED [None]
  - CHOLESTASIS [None]
  - BILIARY TRACT DISORDER [None]
  - ASPARTATE AMINOTRANSFERASE INCREASED [None]
  - LIVER INJURY [None]
  - BLOOD BILIRUBIN INCREASED [None]
  - JAUNDICE [None]
  - PRURITUS [None]
  - BLOOD ALKALINE PHOSPHATASE INCREASED [None]
